FAERS Safety Report 12718533 (Version 2)
Quarter: 2016Q4

REPORT INFORMATION
  Report Type: Report from Study
  Country: None (occurrence: US)
  Receive Date: 20160906
  Receipt Date: 20161017
  Transmission Date: 20170207
  Serious: Yes (Other)
  Sender: FDA-Public Use
  Company Number: US-ABBVIE-16K-163-1716118-00

PATIENT
  Sex: Female
  Weight: 59.02 kg

DRUGS (1)
  1. HUMIRA [Suspect]
     Active Substance: ADALIMUMAB
     Indication: COLITIS ULCERATIVE
     Route: 058
     Dates: start: 201603, end: 201609

REACTIONS (4)
  - Hypersomnia [Recovered/Resolved]
  - Systemic lupus erythematosus [Recovered/Resolved]
  - Rash papular [Recovered/Resolved]
  - Systemic lupus erythematosus rash [Recovered/Resolved]

NARRATIVE: CASE EVENT DATE: 2016
